FAERS Safety Report 17492916 (Version 1)
Quarter: 2020Q1

REPORT INFORMATION
  Report Type: Spontaneous
  Country: NL (occurrence: NL)
  Receive Date: 20200303
  Receipt Date: 20200303
  Transmission Date: 20200409
  Serious: Yes (Death, Life-Threatening, Hospitalization)
  Sender: FDA-Public Use
  Company Number: NL-JNJFOC-20200301000

PATIENT
  Age: 74 Year
  Sex: Female

DRUGS (16)
  1. RIVAROXABAN [Suspect]
     Active Substance: RIVAROXABAN
     Indication: PRODUCT USED FOR UNKNOWN INDICATION
     Dosage: 20 MG, QD
     Route: 048
     Dates: start: 20171207, end: 20191127
  2. FUROSEMIDE. [Concomitant]
     Active Substance: FUROSEMIDE
  3. INSULIN GLARGINE [Concomitant]
     Active Substance: INSULIN GLARGINE
  4. PARACETAMOL [Concomitant]
     Active Substance: ACETAMINOPHEN
     Dosage: UNK
  5. AMIODARONE [Concomitant]
     Active Substance: AMIODARONE
  6. LABETALOL [Suspect]
     Active Substance: LABETALOL\LABETALOL HYDROCHLORIDE
     Indication: HAEMORRHAGE INTRACRANIAL
     Dosage: 0 - 75 MG/H, INTRAVENOUS
     Route: 042
     Dates: start: 20191127, end: 20191128
  7. DIAMOX SEQUELS [Concomitant]
     Active Substance: ACETAZOLAMIDE
  8. INSULIN ASPART [Concomitant]
     Active Substance: INSULIN ASPART
     Dosage: UNK
  9. NIFEDIPINE. [Concomitant]
     Active Substance: NIFEDIPINE
  10. FRAXIPARINE [Concomitant]
     Active Substance: NADROPARIN CALCIUM
  11. COFACT [Suspect]
     Active Substance: COAGULATION FACTOR IX HUMAN\COAGULATION FACTOR VII HUMAN\COAGULATION FACTOR X HUMAN\PROTEIN C\PROTEIN S HUMAN\PROTHROMBIN
     Indication: HAEMOSTASIS
     Dosage: 3000 IE, ONCE
     Route: 042
     Dates: start: 20191127, end: 20191127
  12. COFACT [Suspect]
     Active Substance: COAGULATION FACTOR IX HUMAN\COAGULATION FACTOR VII HUMAN\COAGULATION FACTOR X HUMAN\PROTEIN C\PROTEIN S HUMAN\PROTHROMBIN
     Indication: PROCOAGULANT THERAPY
  13. PANTOPRAZOLE [Concomitant]
     Active Substance: PANTOPRAZOLE
     Dosage: UNK
     Dates: start: 20191127
  14. CLONIDINE. [Concomitant]
     Active Substance: CLONIDINE
  15. COFACT [Suspect]
     Active Substance: COAGULATION FACTOR IX HUMAN\COAGULATION FACTOR VII HUMAN\COAGULATION FACTOR X HUMAN\PROTEIN C\PROTEIN S HUMAN\PROTHROMBIN
     Indication: CEREBRAL HAEMORRHAGE
  16. METOPROLOL. [Suspect]
     Active Substance: METOPROLOL
     Indication: HYPERTENSION
     Dosage: 100 MG, QD
     Route: 048

REACTIONS (6)
  - Hydrocephalus [Recovering/Resolving]
  - Pulseless electrical activity [Recovered/Resolved]
  - Respiratory failure [Fatal]
  - Aspiration [Fatal]
  - Hypotension [Recovered/Resolved]
  - Pneumonia [Recovering/Resolving]

NARRATIVE: CASE EVENT DATE: 20191127
